FAERS Safety Report 17617793 (Version 4)
Quarter: 2020Q3

REPORT INFORMATION
  Report Type: Report from Study
  Country: None (occurrence: US)
  Receive Date: 20200402
  Receipt Date: 20200824
  Transmission Date: 20201102
  Serious: Yes (Hospitalization)
  Sender: FDA-Public Use
  Company Number: US-ABBVIE-20K-163-3344715-00

PATIENT
  Sex: Female

DRUGS (1)
  1. RINVOQ [Suspect]
     Active Substance: UPADACITINIB
     Indication: RHEUMATOID ARTHRITIS
     Route: 048

REACTIONS (6)
  - Rash [Unknown]
  - Arthralgia [Recovering/Resolving]
  - Urosepsis [Recovered/Resolved]
  - Influenza [Recovered/Resolved]
  - Diarrhoea [Unknown]
  - Rosacea [Recovering/Resolving]

NARRATIVE: CASE EVENT DATE: 2019
